FAERS Safety Report 20673752 (Version 2)
Quarter: 2022Q4

REPORT INFORMATION
  Report Type: Spontaneous
  Country: US (occurrence: US)
  Receive Date: 20220405
  Receipt Date: 20221110
  Transmission Date: 20230113
  Serious: Yes (Other)
  Sender: FDA-Public Use
  Company Number: US-TORRENT-00011819

PATIENT
  Age: 40 Year
  Sex: Female

DRUGS (1)
  1. FLUOXETINE [Suspect]
     Active Substance: FLUOXETINE HYDROCHLORIDE
     Indication: Depression
     Dosage: UNKNOWN
     Route: 065

REACTIONS (12)
  - Dyspnoea exertional [Unknown]
  - Shock [Unknown]
  - Electrocardiogram QT prolonged [Recovered/Resolved]
  - Endocarditis [Unknown]
  - Regurgitation [Unknown]
  - Left ventricular dysfunction [Unknown]
  - Condition aggravated [Unknown]
  - Sinus bradycardia [Unknown]
  - Hypokinesia [Unknown]
  - Thrombosis [Unknown]
  - Electrocardiogram T wave inversion [Unknown]
  - Torsade de pointes [Recovered/Resolved]
